FAERS Safety Report 22539523 (Version 2)
Quarter: 2023Q2

REPORT INFORMATION
  Report Type: Spontaneous
  Country: US (occurrence: US)
  Receive Date: 20230609
  Receipt Date: 20230622
  Transmission Date: 20230722
  Serious: Yes (Other)
  Sender: FDA-Public Use
  Company Number: US-IMMUNOGEN, INC.-US-IMGN-23-00130

PATIENT

DRUGS (1)
  1. ELAHERE [Suspect]
     Active Substance: MIRVETUXIMAB SORAVTANSINE-GYNX
     Indication: Product used for unknown indication
     Dosage: UNK, UNK
     Route: 065
     Dates: end: 20230607

REACTIONS (6)
  - Disease progression [Unknown]
  - Eye infection [Unknown]
  - Headache [Unknown]
  - Visual acuity reduced [Unknown]
  - Nausea [Unknown]
  - Photophobia [Unknown]

NARRATIVE: CASE EVENT DATE: 20230607
